FAERS Safety Report 16766356 (Version 1)
Quarter: 2019Q3

REPORT INFORMATION
  Report Type: Spontaneous
  Country: IN (occurrence: IN)
  Receive Date: 20190903
  Receipt Date: 20190903
  Transmission Date: 20191005
  Serious: Yes (Death)
  Sender: FDA-Public Use
  Company Number: IN-HQ SPECIALTY-IN-2019INT000229

PATIENT

DRUGS (3)
  1. CISPLATIN. [Suspect]
     Active Substance: CISPLATIN
     Indication: OSTEOSARCOMA
     Dosage: 33 MG/M2 DAYS 1?3 (CYCLES 1, 2 AND 5, 6,7 AND 8)
     Route: 065
  2. DOXORUBICIN [Suspect]
     Active Substance: DOXORUBICIN
     Indication: OSTEOSARCOMA
     Dosage: 25 MG/M2 DAYS 1?3 (CYCLES 1, 2, 3 AND 4)
     Route: 065
  3. IFOSFAMIDE W/MESNA [Suspect]
     Active Substance: IFOSFAMIDE\MESNA
     Indication: OSTEOSARCOMA
     Dosage: 1.8 MG/M2 DAYS 1?5 (CYCLES 3,4 AND 5, 6, 7 AND 8)
     Route: 065

REACTIONS (2)
  - Acute myeloid leukaemia [Fatal]
  - Toxicity to various agents [Fatal]
